FAERS Safety Report 9972026 (Version 1)
Quarter: 2014Q1

REPORT INFORMATION
  Report Type: Report from Study
  Country: US (occurrence: US)
  Receive Date: 20140306
  Receipt Date: 20140306
  Transmission Date: 20141002
  Serious: No
  Sender: FDA-Public Use
  Company Number: US-ABBVIE-13P-163-1152692-00

PATIENT
  Age: 50 Year
  Sex: Female

DRUGS (5)
  1. HUMIRA [Suspect]
     Indication: PSORIASIS
     Dosage: INTIAL DOSE DAY 1
     Dates: start: 201308
  2. HUMIRA [Suspect]
  3. CLOBEX [Suspect]
     Indication: PSORIASIS
  4. TACLONEX [Suspect]
     Indication: PSORIASIS
  5. MINOCYCLINE [Concomitant]
     Indication: ACNE
     Dosage: 75 MG DAILY

REACTIONS (2)
  - Drug effect incomplete [Not Recovered/Not Resolved]
  - Psoriasis [Unknown]
